FAERS Safety Report 8157337 (Version 4)
Quarter: 2016Q1

REPORT INFORMATION
  Report Type: Report from Study
  Country: US (occurrence: US)
  Receive Date: 20110927
  Receipt Date: 20160330
  Transmission Date: 20160526
  Serious: Yes (Hospitalization, Other)
  Sender: FDA-Public Use
  Company Number: US-PFIZER INC-2011169440

PATIENT
  Age: 54 Year
  Sex: Female
  Weight: 76.64 kg

DRUGS (8)
  1. DILANTIN [Interacting]
     Active Substance: PHENYTOIN
     Indication: PETIT MAL EPILEPSY
     Dosage: 160MG IN THE MORNING AND 200MG IN THE NIGHT
  2. KEPPRA [Suspect]
     Active Substance: LEVETIRACETAM
     Indication: SEIZURE
     Dosage: 500 MG, 2X/DAY
  3. PHENOBARBITAL. [Suspect]
     Active Substance: PHENOBARBITAL
     Dosage: 30 MG, UNK
  4. DILANTIN [Interacting]
     Active Substance: PHENYTOIN
     Indication: SEIZURE
     Dosage: 100MG ONE DURING THE DAY AND ONE AT NIGHT
  5. CIPROFLOXACIN HCL [Interacting]
     Active Substance: CIPROFLOXACIN HYDROCHLORIDE
     Indication: CYSTITIS
     Dosage: 280 MG, 2X/DAY
  6. DILANTIN [Interacting]
     Active Substance: PHENYTOIN
     Indication: GENERALISED TONIC-CLONIC SEIZURE
     Dosage: 100 MG, 1X/DAY
     Route: 048
     Dates: start: 1964
  7. SULFAMETHOXAZOLE-TRIMETHOPRIM (SMZ) [Interacting]
     Active Substance: SULFAMETHOXAZOLE\TRIMETHOPRIM
     Indication: CYSTITIS
     Dosage: UNK
  8. PHENOBARBITAL. [Suspect]
     Active Substance: PHENOBARBITAL
     Indication: SEIZURE
     Dosage: 90 MG, DAILY

REACTIONS (7)
  - Insomnia [Unknown]
  - Cystitis [Recovered/Resolved]
  - Drug ineffective [Recovered/Resolved]
  - Feeling abnormal [Unknown]
  - Drug interaction [Recovered/Resolved]
  - Seizure [Recovered/Resolved]
  - Condition aggravated [Recovered/Resolved]

NARRATIVE: CASE EVENT DATE: 2000
